FAERS Safety Report 24174979 (Version 2)
Quarter: 2024Q4

REPORT INFORMATION
  Report Type: Spontaneous
  Country: JP (occurrence: JP)
  Receive Date: 20240805
  Receipt Date: 20241118
  Transmission Date: 20250115
  Serious: Yes (Other)
  Sender: DAIICHI
  Company Number: JP-DSJP-DSJ-2024-138244

PATIENT
  Age: 68 Year
  Sex: Male
  Weight: 55.5 kg

DRUGS (33)
  1. RIFADIN [Interacting]
     Active Substance: RIFAMPIN
     Indication: Mycobacterium avium complex infection
     Dosage: 450 MG, QD (AFTER BREAKFAST)
     Route: 048
  2. RIFADIN [Interacting]
     Active Substance: RIFAMPIN
     Dosage: 450 MG, QD (AFTER BREAKFAST)
     Route: 048
  3. RIFADIN [Interacting]
     Active Substance: RIFAMPIN
     Dosage: 450 MG, QD (AFTER BREAKFAST)
     Route: 048
  4. EDOXABAN TOSYLATE [Interacting]
     Active Substance: EDOXABAN TOSYLATE
     Indication: Atrial fibrillation
     Dosage: 60 MG, QD (AFTER BREAKFAST)
     Route: 048
  5. EDOXABAN TOSYLATE [Interacting]
     Active Substance: EDOXABAN TOSYLATE
     Dosage: 60 MG, QD (AFTER BREAKFAST)
     Route: 048
  6. EDOXABAN TOSYLATE [Interacting]
     Active Substance: EDOXABAN TOSYLATE
     Dosage: 30 MG, QD (AFTER BREAKFAST)
     Route: 048
  7. CLARITHROMYCIN [Interacting]
     Active Substance: CLARITHROMYCIN
     Indication: Mycobacterium avium complex infection
     Dosage: 400 MG, BID (AFTER BREAKFAST AND SUPPER)
     Route: 048
  8. CLARITHROMYCIN [Interacting]
     Active Substance: CLARITHROMYCIN
     Dosage: 400 MG, BID (AFTER BREAKFAST AND SUPPER)
     Route: 048
  9. CLARITHROMYCIN [Interacting]
     Active Substance: CLARITHROMYCIN
     Dosage: 400 MG, BID (AFTER BREAKFAST AND SUPPER)
     Route: 048
  10. ETHAMBUTOL HYDROCHLORIDE [Concomitant]
     Active Substance: ETHAMBUTOL HYDROCHLORIDE
     Indication: Mycobacterium avium complex infection
     Dosage: 750 MG, QD
     Route: 048
  11. ETHAMBUTOL HYDROCHLORIDE [Concomitant]
     Active Substance: ETHAMBUTOL HYDROCHLORIDE
     Dosage: 750 MG, QD
     Route: 048
  12. ETHAMBUTOL HYDROCHLORIDE [Concomitant]
     Active Substance: ETHAMBUTOL HYDROCHLORIDE
     Dosage: 750 MG, QD
     Route: 048
  13. BISOPROLOL FUMARATE [Concomitant]
     Active Substance: BISOPROLOL FUMARATE
     Indication: Product used for unknown indication
     Dosage: 2.5MG/DAY
     Route: 048
  14. BISOPROLOL FUMARATE [Concomitant]
     Active Substance: BISOPROLOL FUMARATE
     Dosage: 2.5MG/DAY
     Route: 048
  15. BISOPROLOL FUMARATE [Concomitant]
     Active Substance: BISOPROLOL FUMARATE
     Dosage: 2.5MG/DAY
     Route: 048
  16. VALSARTAN [Concomitant]
     Active Substance: VALSARTAN
     Indication: Product used for unknown indication
     Dosage: 80MG/DAY
     Route: 048
  17. VALSARTAN [Concomitant]
     Active Substance: VALSARTAN
     Dosage: 80MG/DAY
     Route: 048
  18. VALSARTAN [Concomitant]
     Active Substance: VALSARTAN
     Dosage: 80MG/DAY
     Route: 048
  19. FENOFIBRATE [Concomitant]
     Active Substance: FENOFIBRATE
     Indication: Product used for unknown indication
     Dosage: 160MG/DAY
     Route: 048
  20. FENOFIBRATE [Concomitant]
     Active Substance: FENOFIBRATE
     Dosage: 160MG/DAY
     Route: 048
  21. FENOFIBRATE [Concomitant]
     Active Substance: FENOFIBRATE
     Dosage: 160MG/DAY
     Route: 048
  22. NIFEDIPINE [Concomitant]
     Active Substance: NIFEDIPINE
     Indication: Product used for unknown indication
     Dosage: 40MG/DAY
     Route: 048
  23. NIFEDIPINE [Concomitant]
     Active Substance: NIFEDIPINE
     Dosage: 40MG/DAY
     Route: 048
  24. NIFEDIPINE [Concomitant]
     Active Substance: NIFEDIPINE
     Dosage: 40MG/DAY
     Route: 048
  25. TEPRENONE [Concomitant]
     Active Substance: TEPRENONE
     Indication: Product used for unknown indication
     Dosage: 50MG/DAY
     Route: 048
  26. TEPRENONE [Concomitant]
     Active Substance: TEPRENONE
     Dosage: 50MG/DAY
     Route: 048
  27. TEPRENONE [Concomitant]
     Active Substance: TEPRENONE
     Dosage: 50MG/DAY
     Route: 048
  28. LANSOPRAZOLE [Concomitant]
     Active Substance: LANSOPRAZOLE
     Indication: Product used for unknown indication
     Dosage: 15MG/DAY
     Route: 048
  29. LANSOPRAZOLE [Concomitant]
     Active Substance: LANSOPRAZOLE
     Dosage: 15MG/DAY
     Route: 048
  30. PANCRELIPASE [Concomitant]
     Active Substance: PANCRELIPASE
     Indication: Product used for unknown indication
     Dosage: 450MG/DAY
     Route: 048
  31. PANCRELIPASE [Concomitant]
     Active Substance: PANCRELIPASE
     Dosage: 450MG/DAY
     Route: 048
  32. ACOTIAMIDE HYDROCHLORIDE [Concomitant]
     Active Substance: ACOTIAMIDE HYDROCHLORIDE
     Indication: Product used for unknown indication
     Dosage: 300MG/DAY
     Route: 048
  33. ACOTIAMIDE HYDROCHLORIDE [Concomitant]
     Active Substance: ACOTIAMIDE HYDROCHLORIDE
     Dosage: 300MG/DAY
     Route: 048

REACTIONS (4)
  - Acute kidney injury [Recovered/Resolved]
  - Drug interaction [Unknown]
  - Drug interaction [Unknown]
  - Haemorrhage subcutaneous [Unknown]
